FAERS Safety Report 9495366 (Version 3)
Quarter: 2013Q4

REPORT INFORMATION
  Report Type: Report from Study
  Country: JP (occurrence: JP)
  Receive Date: 20130903
  Receipt Date: 20131210
  Transmission Date: 20140711
  Serious: Yes (Death, Life-Threatening)
  Sender: FDA-Public Use
  Company Number: JP-GLAXOSMITHKLINE-B0919251A

PATIENT
  Age: 84 Year
  Sex: Female
  Weight: 57 kg

DRUGS (24)
  1. REVOLADE [Suspect]
     Indication: IMMUNE THROMBOCYTOPENIC PURPURA
     Route: 048
     Dates: start: 20130508, end: 20130630
  2. REVOLADE [Suspect]
     Indication: IMMUNE THROMBOCYTOPENIC PURPURA
     Dosage: 12.5MG FOUR TIMES PER WEEK
     Route: 048
     Dates: start: 20130701
  3. PREDONINE [Concomitant]
     Indication: IMMUNE THROMBOCYTOPENIC PURPURA
     Route: 048
     Dates: start: 20130508, end: 20130515
  4. PREDONINE [Concomitant]
     Indication: IMMUNE THROMBOCYTOPENIC PURPURA
     Route: 048
     Dates: start: 20130516, end: 20130523
  5. PREDONINE [Concomitant]
     Indication: IMMUNE THROMBOCYTOPENIC PURPURA
     Route: 048
     Dates: start: 20130524, end: 20130712
  6. TULOBUTEROL [Concomitant]
     Route: 062
     Dates: start: 20130508, end: 20130712
  7. LOSARTAN POTASSIUM [Concomitant]
     Route: 048
     Dates: start: 20130508, end: 20130620
  8. AMLODIPINE [Concomitant]
     Route: 048
     Dates: start: 20130508, end: 20130620
  9. LANSOPRAZOLE [Concomitant]
     Route: 048
     Dates: start: 20130508, end: 20130703
  10. ITRIZOLE [Concomitant]
     Indication: INFECTION PROPHYLAXIS
     Route: 048
     Dates: start: 20130508, end: 20130517
  11. ATORVASTATIN [Concomitant]
     Route: 048
     Dates: start: 20130508, end: 20130620
  12. FUROSEMIDE [Concomitant]
     Route: 048
     Dates: start: 20130508, end: 20130619
  13. SINGULAIR [Concomitant]
     Route: 048
     Dates: start: 20130508, end: 20130712
  14. CRAVIT [Concomitant]
     Route: 048
     Dates: start: 20130508, end: 20130512
  15. SEROQUEL [Concomitant]
     Route: 048
     Dates: start: 20130509, end: 20130712
  16. MIYA BM [Concomitant]
     Route: 048
     Dates: start: 20130513, end: 20130626
  17. POLYFUL [Concomitant]
     Route: 048
     Dates: start: 20130513, end: 20130626
  18. MAGMITT [Concomitant]
     Route: 048
     Dates: start: 20130513, end: 20130712
  19. ITRACONAZOLE [Concomitant]
     Indication: INFECTION PROPHYLAXIS
     Route: 048
     Dates: start: 20130518, end: 20130701
  20. AMINO ACIDS [Concomitant]
     Route: 048
     Dates: start: 20130528, end: 20130607
  21. ERYTHROCIN [Concomitant]
     Indication: INFECTION PROPHYLAXIS
     Route: 048
     Dates: start: 20130611, end: 20130620
  22. CHINESE MEDICINE [Concomitant]
     Route: 048
     Dates: start: 20130611, end: 20130626
  23. MALFA [Concomitant]
     Route: 048
     Dates: start: 20130628, end: 20130712
  24. MONILAC [Concomitant]
     Route: 048
     Dates: start: 20130708, end: 20130712

REACTIONS (2)
  - Peritonitis bacterial [Fatal]
  - Hyperammonaemia [Recovered/Resolved]
